FAERS Safety Report 4788650-4 (Version None)
Quarter: 2005Q4

REPORT INFORMATION
  Report Type: 
  Country: None (occurrence: None)
  Receive Date: 20051005
  Receipt Date: 20050929
  Transmission Date: 20060501
  Serious: Yes (Hospitalization)
  Sender: FDA-Public Use
  Company Number: 20041628

PATIENT
  Age: 71 Year
  Sex: Female

DRUGS (4)
  1. DIGOXIN [Suspect]
     Indication: ATRIAL FIBRILLATION
     Dosage: 125MCG FOUR TIMES PER DAY
     Route: 048
     Dates: start: 20040421, end: 20040908
  2. DILTIAZEM [Suspect]
     Dosage: 240MG FOUR TIMES PER DAY
     Route: 048
     Dates: end: 20040908
  3. BENDROFLUMETHIAZIDE [Suspect]
     Dosage: 2.5MG FOUR TIMES PER DAY
     Route: 048
     Dates: end: 20040908
  4. ZOLEDRONATE [Concomitant]
     Route: 065

REACTIONS (6)
  - ATRIOVENTRICULAR BLOCK COMPLETE [None]
  - CHEST PAIN [None]
  - DIZZINESS [None]
  - FALL [None]
  - HYPOKALAEMIA [None]
  - NAUSEA [None]
